FAERS Safety Report 8685260 (Version 2)
Quarter: 2012Q4

REPORT INFORMATION
  Report Type: 
  Country: US (occurrence: US)
  Receive Date: 20120726
  Receipt Date: 20120917
  Transmission Date: 20130627
  Serious: Yes (Hospitalization)
  Sender: FDA-Public Use
  Company Number: US-ASTRAZENECA-2011SE50235

PATIENT
  Age: 20 Year
  Sex: Female

DRUGS (3)
  1. SEROQUEL [Suspect]
     Indication: BIPOLAR DISORDER
     Route: 048
  2. SEROQUEL [Suspect]
     Indication: AFFECTIVE DISORDER
     Route: 048
  3. ZONEGRAN [Concomitant]
     Indication: NAUSEA

REACTIONS (6)
  - Gastric ulcer [Unknown]
  - Oesophageal disorder [Unknown]
  - Vomiting [Unknown]
  - Bipolar disorder [Unknown]
  - Therapeutic response unexpected [Unknown]
  - Gastrooesophageal reflux disease [Unknown]
